FAERS Safety Report 12675803 (Version 2)
Quarter: 2018Q2

REPORT INFORMATION
  Report Type: Spontaneous
  Country: US (occurrence: US)
  Receive Date: 20160823
  Receipt Date: 20180621
  Transmission Date: 20180711
  Serious: No
  Sender: FDA-Public Use
  Company Number: US-JAZZ-2016-US-006796

PATIENT
  Sex: Female

DRUGS (27)
  1. VITAMIN D [Concomitant]
     Active Substance: CHOLECALCIFEROL
  2. LASIX [Concomitant]
     Active Substance: FUROSEMIDE
  3. PLAQUENIL [Concomitant]
     Active Substance: HYDROXYCHLOROQUINE SULFATE
  4. POTASSIUM CHLORIDE. [Concomitant]
     Active Substance: POTASSIUM CHLORIDE
  5. DEXEDRINE [Concomitant]
     Active Substance: DEXTROAMPHETAMINE SULFATE
  6. ESTRATEST [Concomitant]
     Active Substance: ESTROGENS, ESTERIFIED\METHYLTESTOSTERONE
  7. MENEST [Concomitant]
     Active Substance: ESTROGENS, ESTERIFIED
  8. SOMA [Concomitant]
     Active Substance: CARISOPRODOL
  9. NEXIUM [Concomitant]
     Active Substance: ESOMEPRAZOLE MAGNESIUM
  10. FERROUS SULFATE. [Concomitant]
     Active Substance: FERROUS SULFATE
  11. XYREM [Suspect]
     Active Substance: SODIUM OXYBATE
     Indication: NARCOLEPSY
     Dosage: 2.25 G, BID
     Route: 048
     Dates: start: 200812, end: 2009
  12. XYREM [Suspect]
     Active Substance: SODIUM OXYBATE
     Dosage: 3.75 G, SECOND DOSE
     Route: 048
     Dates: start: 200904, end: 200909
  13. CYMBALTA [Concomitant]
     Active Substance: DULOXETINE HYDROCHLORIDE
  14. FLONASE [Concomitant]
     Active Substance: FLUTICASONE PROPIONATE
  15. RESTASIS [Concomitant]
     Active Substance: CYCLOSPORINE
  16. XYREM [Suspect]
     Active Substance: SODIUM OXYBATE
     Indication: CATAPLEXY
     Dosage: 3.75 G, FIRST DOSE
     Route: 048
     Dates: start: 200904, end: 200909
  17. XYREM [Suspect]
     Active Substance: SODIUM OXYBATE
     Dosage: 4.5 G, BID
     Route: 048
     Dates: start: 201303, end: 2014
  18. COLCRYS [Concomitant]
     Active Substance: COLCHICINE
  19. PROVERA [Concomitant]
     Active Substance: MEDROXYPROGESTERONE ACETATE
  20. XYREM [Suspect]
     Active Substance: SODIUM OXYBATE
     Dosage: 4.5 G, BID
     Route: 048
     Dates: start: 200909, end: 2011
  21. SYNTHROID [Concomitant]
     Active Substance: LEVOTHYROXINE SODIUM
  22. XYREM [Suspect]
     Active Substance: SODIUM OXYBATE
     Dosage: 4.5 G, BID
     Route: 048
     Dates: start: 201205, end: 2012
  23. LYRICA [Concomitant]
     Active Substance: PREGABALIN
  24. VESICARE [Concomitant]
     Active Substance: SOLIFENACIN SUCCINATE
  25. FLUORIDE [Concomitant]
     Active Substance: SODIUM FLUORIDE
  26. OMNARIS [Concomitant]
     Active Substance: CICLESONIDE
  27. OXYCODONE [Concomitant]
     Active Substance: OXYCODONE

REACTIONS (3)
  - Pain [Recovering/Resolving]
  - Unevaluable event [Unknown]
  - Dizziness [Unknown]
